FAERS Safety Report 5629794-4 (Version None)
Quarter: 2008Q1

REPORT INFORMATION
  Report Type: 
  Country: None (occurrence: None)
  Receive Date: 20080214
  Receipt Date: 20080203
  Transmission Date: 20080703
  Serious: Yes (Disabling, Other)
  Sender: FDA-Public Use
  Company Number: OSCN-NO-0708L-0322

PATIENT
  Age: 73 Year
  Sex: Female
  Weight: 50.5 kg

DRUGS (10)
  1. OMNISCAN [Suspect]
     Indication: DRUG USE FOR UNKNOWN INDICATION
     Dosage: 15 ML, SINGLE DOSE, I.V.
     Route: 042
  2. .................. [Concomitant]
  3. ................... [Concomitant]
  4. .................. [Concomitant]
  5. ............... [Concomitant]
  6. .............. [Concomitant]
  7. .................... [Concomitant]
  8. ................ [Concomitant]
  9. ................ [Concomitant]
  10. ............... [Concomitant]

REACTIONS (2)
  - NEPHROGENIC SYSTEMIC FIBROSIS [None]
  - VERTEBRAL ABSCESS [None]
